FAERS Safety Report 16939421 (Version 1)
Quarter: 2019Q4

REPORT INFORMATION
  Report Type: Spontaneous
  Country: US (occurrence: US)
  Receive Date: 20191021
  Receipt Date: 20191021
  Transmission Date: 20200122
  Serious: Yes (Hospitalization, Other)
  Sender: FDA-Public Use
  Company Number: US-ALEMBIC PHARMACUETICALS LIMITED-2019SCAL000765

PATIENT

DRUGS (1)
  1. MOXIFLOXACIN. [Suspect]
     Active Substance: MOXIFLOXACIN
     Indication: PNEUMONIA
     Dosage: UNK

REACTIONS (14)
  - Drug reaction with eosinophilia and systemic symptoms [Unknown]
  - Arthralgia [Unknown]
  - Chills [Unknown]
  - Rash [Unknown]
  - Cough [Unknown]
  - Condition aggravated [Unknown]
  - Dyspnoea [Unknown]
  - Bronchiolitis [Unknown]
  - Headache [Unknown]
  - Rash morbilliform [Unknown]
  - Lymphadenopathy [Unknown]
  - Wheezing [Unknown]
  - Pyrexia [Unknown]
  - Tachycardia [Unknown]
